FAERS Safety Report 20694548 (Version 5)
Quarter: 2022Q4

REPORT INFORMATION
  Report Type: Report from Study
  Country: US (occurrence: US)
  Receive Date: 20220411
  Receipt Date: 20221012
  Transmission Date: 20230113
  Serious: Yes (Other)
  Sender: FDA-Public Use
  Company Number: US-SA-SAC20220405001830

PATIENT
  Age: 40 Year
  Sex: Female

DRUGS (5)
  1. AUBAGIO [Suspect]
     Active Substance: TERIFLUNOMIDE
     Indication: Multiple sclerosis
     Dosage: 14 MG, QD
     Route: 048
     Dates: start: 202108, end: 202209
  2. METFORMIN [Suspect]
     Active Substance: METFORMIN HYDROCHLORIDE
     Indication: Glucose tolerance impaired
     Dosage: UNK
     Dates: start: 2020
  3. PIROXICAM [Concomitant]
     Active Substance: PIROXICAM
  4. ZOLPIDEM [Concomitant]
     Active Substance: ZOLPIDEM TARTRATE
  5. OCREVUS [Concomitant]
     Active Substance: OCRELIZUMAB
     Dosage: UNK
     Dates: start: 2019, end: 2021

REACTIONS (10)
  - Thrombosis [Recovered/Resolved]
  - Fatigue [Not Recovered/Not Resolved]
  - Endometriosis [Unknown]
  - Anaemia [Recovered/Resolved]
  - Abdominal discomfort [Recovered/Resolved]
  - Asthenia [Unknown]
  - Pain [Unknown]
  - Discomfort [Unknown]
  - Hypoaesthesia [Unknown]
  - Paraesthesia [Unknown]

NARRATIVE: CASE EVENT DATE: 20210801
